FAERS Safety Report 16012625 (Version 1)
Quarter: 2019Q1

REPORT INFORMATION
  Report Type: Spontaneous
  Country: GB (occurrence: ES)
  Receive Date: 20190227
  Receipt Date: 20190227
  Transmission Date: 20190418
  Serious: Yes (Life-Threatening, Hospitalization)
  Sender: FDA-Public Use
  Company Number: ES-FRESENIUS KABI-FK201902021

PATIENT
  Age: 50 Year
  Sex: Male

DRUGS (5)
  1. CLAVULANATE POTASSIUM/AMOXICILLIN TRIHYDRATE [Suspect]
     Active Substance: AMOXICILLIN\CLAVULANATE POTASSIUM
     Indication: PNEUMONIA
     Route: 042
     Dates: start: 20190115, end: 20190120
  2. OSELTAMIVIR PHOSPHATE. [Suspect]
     Active Substance: OSELTAMIVIR PHOSPHATE
     Indication: INFLUENZA A VIRUS TEST POSITIVE
     Route: 048
     Dates: start: 20190117, end: 20190120
  3. VORICONAZOLE. [Suspect]
     Active Substance: VORICONAZOLE
     Indication: PNEUMONIA
     Route: 048
     Dates: start: 20190117, end: 20190121
  4. LINEZOLID (MANUFACTURER UNKNOWN) [Suspect]
     Active Substance: LINEZOLID
     Indication: PNEUMONIA
     Route: 042
     Dates: start: 20190116, end: 20190121
  5. AZITHROMYCIN ANHYDROUS. [Suspect]
     Active Substance: AZITHROMYCIN ANHYDROUS
     Indication: PNEUMONIA
     Route: 042
     Dates: start: 20190116, end: 20190120

REACTIONS (2)
  - Hepatitis cholestatic [Recovering/Resolving]
  - Coagulopathy [Recovered/Resolved]

NARRATIVE: CASE EVENT DATE: 20190120
